FAERS Safety Report 16474976 (Version 2)
Quarter: 2019Q3

REPORT INFORMATION
  Report Type: Spontaneous
  Country: AU (occurrence: AU)
  Receive Date: 20190625
  Receipt Date: 20190729
  Transmission Date: 20191004
  Serious: Yes (Hospitalization, Disabling, Other)
  Sender: FDA-Public Use
  Company Number: AU-ENDO PHARMACEUTICALS INC-2019-105639

PATIENT
  Age: 69 Year
  Sex: Male
  Weight: 90 kg

DRUGS (4)
  1. SIMVASTATIN. [Concomitant]
     Active Substance: SIMVASTATIN
     Indication: PULMONARY EMBOLISM
     Dosage: UNK UNKNOWN, UNKNOWN
     Route: 065
  2. MOVOX                              /00615202/ [Concomitant]
     Indication: DEEP VEIN THROMBOSIS
     Dosage: UNK UNKNOWN, UNKNOWN
     Route: 065
  3. AVEED [Suspect]
     Active Substance: TESTOSTERONE UNDECANOATE
     Indication: HYPOGONADISM
     Dosage: UNK UNKNOWN, UNKNOWN
     Route: 065
     Dates: start: 201109, end: 2015
  4. AVEED [Suspect]
     Active Substance: TESTOSTERONE UNDECANOATE
     Indication: PRIMARY HYPOGONADISM
     Dosage: 1000 MG, EVERY 3 MONTHS
     Route: 065
     Dates: start: 2016

REACTIONS (13)
  - Intervertebral disc protrusion [Unknown]
  - Facet joint syndrome [Unknown]
  - Muscle spasms [Unknown]
  - Lumbar spinal stenosis [Unknown]
  - Fatigue [Unknown]
  - Gait disturbance [Unknown]
  - Pain [Unknown]
  - Intentional dose omission [Recovered/Resolved]
  - Disturbance in attention [Unknown]
  - Ligamentum flavum hypertrophy [Unknown]
  - Back pain [Unknown]
  - Myalgia [Unknown]
  - Pain in extremity [Unknown]

NARRATIVE: CASE EVENT DATE: 2017
